FAERS Safety Report 8764328 (Version 1)
Quarter: 2012Q4

REPORT INFORMATION
  Report Type: 
  Country: JP (occurrence: JP)
  Receive Date: 20120831
  Receipt Date: 20120831
  Transmission Date: 20130627
  Serious: Yes (Other)
  Sender: FDA-Public Use
  Company Number: JP-PFIZER INC-2012214030

PATIENT
  Age: 78 Year
  Sex: Male

DRUGS (6)
  1. AMLODIN [Suspect]
     Dosage: 10 mg, Daily
     Dates: start: 20120607, end: 20120625
  2. DAI-KENCHU-TO [Concomitant]
  3. RISPERIDONE [Concomitant]
  4. LINEZOLID [Concomitant]
  5. PIPERACILLIN SODIUM W/TAZOBACTAM SODIUM [Concomitant]
  6. OMEPRAZOLE SODIUM [Concomitant]

REACTIONS (1)
  - Toxic skin eruption [Recovered/Resolved]
